FAERS Safety Report 8961641 (Version 1)
Quarter: 2012Q4

REPORT INFORMATION
  Report Type: 
  Country: US (occurrence: US)
  Receive Date: 20121212
  Receipt Date: 20121212
  Transmission Date: 20130627
  Serious: Yes (Other)
  Sender: FDA-Public Use
  Company Number: US-BAYER-2012-128510

PATIENT
  Age: 88 Year
  Sex: Female
  Weight: 85 kg

DRUGS (4)
  1. ALKA-SELTZER ORIGINAL [Suspect]
     Indication: URINARY TRACT INFECTION
     Dosage: 2 DF, PRN
     Route: 048
     Dates: start: 201208
  2. SYNTHROID [Concomitant]
  3. RAMIPRIL [Concomitant]
  4. SERTRALINE [Concomitant]

REACTIONS (2)
  - Urinary tract infection [None]
  - Off label use [None]
